FAERS Safety Report 4433486-7 (Version None)
Quarter: 2004Q3

REPORT INFORMATION
  Report Type: 
  Country: None (occurrence: None)
  Receive Date: 20040826
  Receipt Date: 20040817
  Transmission Date: 20050211
  Serious: Yes (Hospitalization)
  Sender: FDA-Public Use
  Company Number: GB-JNJFOC-20040806938

PATIENT
  Sex: Female

DRUGS (7)
  1. REMICADE [Suspect]
     Indication: RHEUMATOID ARTHRITIS
     Route: 042
  2. METHOTREXATE [Concomitant]
  3. ASPIRIN [Concomitant]
  4. DIHYDROCODEINE [Concomitant]
  5. DILTIAZEM [Concomitant]
  6. ISOSORBIDE MONONITRATE [Concomitant]
  7. FOLIC ACID [Concomitant]

REACTIONS (4)
  - ARTHROPATHY [None]
  - BALANCE DISORDER [None]
  - FALL [None]
  - UPPER LIMB FRACTURE [None]
